FAERS Safety Report 10568929 (Version 2)
Quarter: 2014Q4

REPORT INFORMATION
  Report Type: Spontaneous
  Country: SE (occurrence: SE)
  Receive Date: 20141106
  Receipt Date: 20141223
  Transmission Date: 20150529
  Serious: Yes (Life-Threatening, Hospitalization)
  Sender: FDA-Public Use
  Company Number: SE-TEVA-519802ISR

PATIENT
  Age: 37 Year
  Sex: Male

DRUGS (8)
  1. OXASCAND [Suspect]
     Active Substance: OXAZEPAM
     Dosage: ^4 ST^
     Route: 048
     Dates: start: 20130805, end: 20130805
  2. XANOR [Suspect]
     Active Substance: ALPRAZOLAM
     Dosage: ^4 ST^
     Route: 048
     Dates: start: 20130805, end: 20130805
  3. STESOLID [Suspect]
     Active Substance: DIAZEPAM
     Dosage: ^10 ST^
     Route: 048
     Dates: start: 20130805, end: 20130805
  4. SERTRALINE [Concomitant]
     Active Substance: SERTRALINE HYDROCHLORIDE
  5. MIRTAZAPINE. [Concomitant]
     Active Substance: MIRTAZAPINE
  6. THERALEN [Suspect]
     Active Substance: TRIMEPRAZINE
     Dosage: ^6 ML^
     Dates: start: 20130805, end: 20130805
  7. BRICANYL [Concomitant]
     Active Substance: TERBUTALINE SULFATE
  8. CAMPRAL [Concomitant]
     Active Substance: ACAMPROSATE CALCIUM

REACTIONS (1)
  - Toxicity to various agents [Recovered/Resolved]

NARRATIVE: CASE EVENT DATE: 20130805
